FAERS Safety Report 20170590 (Version 6)
Quarter: 2023Q1

REPORT INFORMATION
  Report Type: Report from Study
  Country: US (occurrence: US)
  Receive Date: 20211210
  Receipt Date: 20230109
  Transmission Date: 20230418
  Serious: Yes (Death, Hospitalization, Other)
  Sender: FDA-Public Use
  Company Number: US-OTSUKA-2021_042465

PATIENT
  Age: 74 Year
  Sex: Female
  Weight: 90.4 kg

DRUGS (3)
  1. CEDAZURIDINE\DECITABINE [Suspect]
     Active Substance: CEDAZURIDINE\DECITABINE
     Indication: Neoplasm malignant
     Dosage: 135MG (35 MG DECITABINE AND 100 MG CEDAZURIDINE), QD 1-5 DAYS EVERY 28 DAY CYCLE
     Route: 048
     Dates: start: 20211112
  2. CEDAZURIDINE\DECITABINE [Suspect]
     Active Substance: CEDAZURIDINE\DECITABINE
     Dosage: 135 MG, QD (1 TABLET, ORALLY, DAILY BEFORE BREAKFAST FOR 5 DAYS OF EACH MONTH)
     Route: 048
     Dates: start: 20211112
  3. CEDAZURIDINE\DECITABINE [Suspect]
     Active Substance: CEDAZURIDINE\DECITABINE
     Dosage: 1 DF, QD BEFORE BREAKFAST FOR 5 DAYS OF EACH MONTH
     Route: 048
     Dates: start: 20211112

REACTIONS (8)
  - Death [Fatal]
  - Transfusion [Unknown]
  - Red blood cell count abnormal [Unknown]
  - Pollakiuria [Unknown]
  - Muscle spasms [Unknown]
  - Epistaxis [Unknown]
  - Diarrhoea [Unknown]
  - Product use in unapproved indication [Unknown]

NARRATIVE: CASE EVENT DATE: 20220223
